FAERS Safety Report 8878765 (Version 1)
Quarter: 2012Q4

REPORT INFORMATION
  Report Type: 
  Country: GR (occurrence: GR)
  Receive Date: 20121026
  Receipt Date: 20121026
  Transmission Date: 20130627
  Serious: Yes (Other)
  Sender: FDA-Public Use
  Company Number: GR-ROCHE-1148652

PATIENT

DRUGS (2)
  1. BEVACIZUMAB [Suspect]
     Indication: GLIOBLASTOMA MULTIFORME
     Route: 065
  2. TEMOZOLOMIDE [Suspect]
     Indication: GLIOBLASTOMA MULTIFORME
     Dosage: Dose in to 3 levels: 50 (Level I), 75 (Level II) and 100 mg/m2/day
     Route: 042

REACTIONS (5)
  - Haematotoxicity [Unknown]
  - Thrombocytosis [Unknown]
  - Cerebral haemorrhage [Unknown]
  - Thrombosis [Unknown]
  - Leukopenia [Unknown]
